FAERS Safety Report 19590818 (Version 1)
Quarter: 2021Q3

REPORT INFORMATION
  Report Type: Spontaneous
  Country: AU (occurrence: AU)
  Receive Date: 20210721
  Receipt Date: 20210721
  Transmission Date: 20211014
  Serious: Yes (Death, Other)
  Sender: FDA-Public Use
  Company Number: AU-BAYER-2021-174222

PATIENT
  Age: 70 Year
  Sex: Female

DRUGS (1)
  1. CIPROFLOXACIN MONOHYDROCHLORIDE [Suspect]
     Active Substance: CIPROFLOXACIN
     Indication: MEDICAL DEVICE SITE JOINT INFECTION
     Dosage: UNK
     Route: 048

REACTIONS (3)
  - Psoas abscess [Fatal]
  - Pathogen resistance [None]
  - Medical device site joint infection [None]
